FAERS Safety Report 12921708 (Version 4)
Quarter: 2017Q1

REPORT INFORMATION
  Report Type: Report from Study
  Country: JP (occurrence: JP)
  Receive Date: 20161108
  Receipt Date: 20170321
  Transmission Date: 20170428
  Serious: Yes (Death)
  Sender: FDA-Public Use
  Company Number: JP-HORIZON-BUP-0114-2016

PATIENT
  Age: 8 Month
  Sex: Male

DRUGS (12)
  1. THYRADIN [Concomitant]
     Active Substance: LEVOTHYROXINE
     Dosage: 50 ?G
     Route: 048
     Dates: end: 20160930
  2. URSO [Concomitant]
     Active Substance: URSODIOL
     Dosage: 90 MG
     Route: 048
     Dates: end: 20161001
  3. INCREMIN [Concomitant]
     Active Substance: FERRIC PYROPHOSPHATE
     Dosage: 3 ML
     Route: 048
     Dates: end: 20160930
  4. NEO-MINOPHAGEN C [Concomitant]
     Active Substance: AMMONIUM GLYCYRRHIZATE
     Dosage: 3 ML
     Route: 042
     Dates: end: 20160930
  5. L-CARTIN FF [Concomitant]
     Active Substance: LEVOCARNITINE
     Dosage: 1.5 ML
     Dates: end: 20160930
  6. BUPHENYL [Suspect]
     Active Substance: SODIUM PHENYLBUTYRATE
     Indication: PROGRESSIVE FAMILIAL INTRAHEPATIC CHOLESTASIS
     Dosage: 200 MG/KG THREE TIMES DAILY
     Route: 048
     Dates: start: 2016, end: 20161001
  7. GASTER [Concomitant]
     Active Substance: FAMOTIDINE
     Dosage: 3 ML
     Route: 042
     Dates: end: 20160930
  8. SODIUM PHOSPHATE [Concomitant]
     Active Substance: SODIUM PHOSPHATE
     Dosage: 3 ML
     Route: 042
     Dates: end: 20160930
  9. CEFAZOLIN NA [Concomitant]
     Dosage: 100 MG
     Route: 041
     Dates: end: 20160930
  10. KAYTWO [Concomitant]
     Active Substance: MENATETRENONE
     Indication: PROPHYLAXIS
     Dosage: 0.5 ML
     Route: 048
     Dates: end: 20160930
  11. SODIUM CHLORIDE. [Concomitant]
     Active Substance: SODIUM CHLORIDE
     Dosage: 1.4 G
     Dates: end: 20160930
  12. MIDAZOLAM [Concomitant]
     Active Substance: MIDAZOLAM HYDROCHLORIDE
     Indication: SEDATION
     Dosage: 3.6 ML
     Route: 042
     Dates: end: 20161001

REACTIONS (2)
  - Hepatic failure [Fatal]
  - Off label use [Unknown]

NARRATIVE: CASE EVENT DATE: 201609
